FAERS Safety Report 23418645 (Version 1)
Quarter: 2024Q1

REPORT INFORMATION
  Report Type: Other
  Country: US (occurrence: US)
  Receive Date: 20240118
  Receipt Date: 20240118
  Transmission Date: 20240410
  Serious: No
  Sender: FDA-Public Use
  Company Number: US-UROVANT SCIENCES GMBH-202310-URV-002050

PATIENT
  Age: 86 Year
  Sex: Male

DRUGS (2)
  1. GEMTESA [Suspect]
     Active Substance: VIBEGRON
     Indication: Hypertonic bladder
     Dosage: UNK
     Route: 065
     Dates: start: 202310
  2. GERDPILL [Concomitant]
     Indication: Product used for unknown indication
     Dosage: UNK, EVERY ONCE IN A WHILE
     Route: 065

REACTIONS (3)
  - Pollakiuria [Unknown]
  - Nocturia [Unknown]
  - Inability to afford medication [Unknown]
